FAERS Safety Report 6958944-2 (Version None)
Quarter: 2010Q3

REPORT INFORMATION
  Report Type: 
  Country: None (occurrence: None)
  Receive Date: 20100831
  Receipt Date: 20100817
  Transmission Date: 20110219
  Serious: Yes (Hospitalization)
  Sender: FDA-Public Use
  Company Number: TR-MYLANLABS-2010S1014923

PATIENT
  Age: 76 Year
  Sex: Male

DRUGS (2)
  1. WARFARIN SODIUM [Suspect]
     Indication: SUICIDE ATTEMPT
     Route: 048
  2. NAPHTHALENE [Concomitant]
     Indication: SUICIDE ATTEMPT
     Route: 048

REACTIONS (5)
  - ACUTE ABDOMEN [None]
  - CHOLECYSTITIS [None]
  - GALLBLADDER PERFORATION [None]
  - RESPIRATORY ALKALOSIS [None]
  - SUICIDE ATTEMPT [None]
